FAERS Safety Report 5629989-X (Version None)
Quarter: 2008Q1

REPORT INFORMATION
  Report Type: 
  Country: None (occurrence: None)
  Receive Date: 20080218
  Receipt Date: 20080211
  Transmission Date: 20080703
  Serious: Yes (Life-Threatening, Hospitalization)
  Sender: FDA-Public Use
  Company Number: PHFR2008GB00852

PATIENT
  Age: 47 Year
  Sex: Male

DRUGS (10)
  1. ACYCLOVIR [Concomitant]
     Dosage: 800MG
     Route: 048
     Dates: start: 20080128
  2. ADALAT - SLOW RELEASE [Concomitant]
     Dosage: 10MG
     Route: 048
     Dates: start: 20080128
  3. ASPIRIN [Concomitant]
     Dosage: 75MG
     Route: 048
     Dates: start: 20080128
  4. ATENOLOL [Concomitant]
     Dosage: 50MG
     Route: 048
     Dates: start: 20080128
  5. CELLCEPT [Concomitant]
     Dosage: 1G
     Route: 048
     Dates: start: 20080128
  6. BASILIXIMAB [Suspect]
     Dosage: 20 MG, UNK
     Route: 042
     Dates: start: 20080128, end: 20080128
  7. CO-TRIMOXAZOLE [Concomitant]
     Dosage: 480 MG, QW3
     Route: 048
     Dates: start: 20080128
  8. HEPARIN [Concomitant]
     Route: 058
     Dates: start: 20080128
  9. PREDNISOLONE [Concomitant]
     Dosage: 30MG
     Route: 048
     Dates: start: 20080128
  10. RANITIDINE [Concomitant]
     Dosage: 150MG
     Route: 048
     Dates: start: 20080128

REACTIONS (3)
  - BLOOD PRESSURE DECREASED [None]
  - LUNG INJURY [None]
  - OXYGEN SATURATION ABNORMAL [None]
